FAERS Safety Report 6859247-7 (Version None)
Quarter: 2010Q3

REPORT INFORMATION
  Report Type: 
  Country: None (occurrence: None)
  Receive Date: 20100719
  Receipt Date: 20080225
  Transmission Date: 20110219
  Serious: No
  Sender: FDA-Public Use
  Company Number: US-PFIZER INC-2008018983

PATIENT
  Sex: Female
  Weight: 75 kg

DRUGS (1)
  1. CHANTIX [Suspect]
     Indication: SMOKING CESSATION THERAPY
     Route: 048
     Dates: start: 20071223, end: 20080221

REACTIONS (7)
  - ANXIETY [None]
  - DEPRESSED MOOD [None]
  - EMOTIONAL DISORDER [None]
  - HEART RATE INCREASED [None]
  - INSOMNIA [None]
  - IRRITABILITY [None]
  - WEIGHT INCREASED [None]
